FAERS Safety Report 17676808 (Version 1)
Quarter: 2020Q2

REPORT INFORMATION
  Report Type: Spontaneous
  Country: ES (occurrence: ES)
  Receive Date: 20200416
  Receipt Date: 20200416
  Transmission Date: 20200714
  Serious: Yes (Hospitalization)
  Sender: FDA-Public Use
  Company Number: ES-MYLANLABS-2020M1038036

PATIENT
  Age: 78 Year
  Sex: Female

DRUGS (4)
  1. CITALOPRAM [Concomitant]
     Active Substance: CITALOPRAM HYDROBROMIDE
  2. FENTANILO MYLAN [Suspect]
     Active Substance: FENTANYL
     Indication: OSTEOARTHRITIS
     Dosage: UNK
     Route: 062
     Dates: start: 20181103, end: 20190620
  3. APROVEL [Concomitant]
     Active Substance: IRBESARTAN
     Dosage: UNK
     Route: 065
  4. SIMVASTATINA [Concomitant]
     Active Substance: SIMVASTATIN

REACTIONS (3)
  - Respiratory depression [Recovered/Resolved]
  - Medication error [Recovered/Resolved]
  - Intentional product misuse [Unknown]

NARRATIVE: CASE EVENT DATE: 20190620
